FAERS Safety Report 22290290 (Version 1)
Quarter: 2023Q2

REPORT INFORMATION
  Report Type: Spontaneous
  Country: US (occurrence: US)
  Receive Date: 20230505
  Receipt Date: 20230505
  Transmission Date: 20230722
  Serious: Yes (Hospitalization, Other)
  Sender: FDA-Public Use
  Company Number: US-009507513-2305USA001512

PATIENT
  Age: 65 Year
  Sex: Male

DRUGS (3)
  1. CUBICIN [Suspect]
     Active Substance: DAPTOMYCIN
     Indication: Antibiotic therapy
     Dosage: FOR THREE WEEKS
     Route: 042
  2. CEFEPIME [Concomitant]
     Active Substance: CEFEPIME HYDROCHLORIDE
     Indication: Antibiotic therapy
     Route: 042
  3. VANCOMYCIN [Concomitant]
     Active Substance: VANCOMYCIN
     Indication: Antibiotic therapy
     Route: 042

REACTIONS (2)
  - Eosinophilic pneumonia acute [Recovered/Resolved]
  - Product use in unapproved indication [Unknown]
